FAERS Safety Report 4794948-6 (Version None)
Quarter: 2005Q4

REPORT INFORMATION
  Report Type: 
  Country: None (occurrence: None)
  Receive Date: 20051006
  Receipt Date: 20050923
  Transmission Date: 20060501
  Serious: Yes (Hospitalization)
  Sender: FDA-Public Use
  Company Number: 2005135534

PATIENT
  Age: 73 Year
  Sex: Female

DRUGS (15)
  1. CARDURA XL [Suspect]
     Indication: ILL-DEFINED DISORDER
     Dosage: 8 MG (8 MD, QD), ORAL
     Route: 048
  2. DICLOFENAC SODIUM [Suspect]
     Indication: ILL-DEFINED DISORDER
     Dosage: 100 MG (100 MG, QD), ORAL
     Route: 048
  3. DIGOXIN [Suspect]
     Indication: ILL-DEFINED DISORDER
     Dosage: 250 MCG
  4. BISOPROLOL (BISOPROLOL) [Suspect]
     Indication: ILL-DEFINED DISORDER
     Dosage: 10 MG, ORAL
     Route: 048
  5. PANTOPRAZOLE SODIUM [Suspect]
     Indication: ILL-DEFINED DISORDER
     Dosage: 40 MG, ORAL
     Route: 048
  6. LEVOTHYROXINE SODIUM [Suspect]
     Indication: ILL-DEFINED DISORDER
     Dosage: 50 MCG (QD), ORAL
     Route: 048
  7. BUMETANIDE [Suspect]
     Indication: ILL-DEFINED DISORDER
     Dosage: 1.5 MG (1.5 MG, QD), ORAL
     Route: 048
  8. RAMIPRIL [Suspect]
     Indication: ILL-DEFINED DISORDER
     Dosage: 10 MG (10 MG, QD), ORAL
     Route: 048
  9. FUCIDINE CAP [Suspect]
     Indication: ILL-DEFINED DISORDER
     Dosage: 1500 MG (1500 MG, QD), ORAL
     Route: 048
     Dates: start: 20050723, end: 20050723
  10. WARFARIN SODIUM [Suspect]
     Indication: ILL-DEFINED DISORDER
     Dosage: 5 MG, ORAL
     Route: 048
  11. PRAVASTATIN SODIUM [Suspect]
     Indication: ILL-DEFINED DISORDER
     Dosage: 20 MG, ORAL
     Route: 048
  12. FLOXAPEN (FLUCLOXACILLIN SODIUM) [Concomitant]
  13. MOTILIUM [Concomitant]
  14. ZOFRAN [Concomitant]
  15. STEMETIL ^SPECIA^ (PROCHLORPERAZINE) [Concomitant]

REACTIONS (7)
  - DRUG INTERACTION [None]
  - HAEMODIALYSIS [None]
  - INTERNATIONAL NORMALISED RATIO INCREASED [None]
  - JOINT EFFUSION [None]
  - RENAL IMPAIRMENT [None]
  - RENAL TUBULAR NECROSIS [None]
  - THERAPEUTIC AGENT TOXICITY [None]
